FAERS Safety Report 16189344 (Version 1)
Quarter: 2019Q2

REPORT INFORMATION
  Report Type: Spontaneous
  Country: US (occurrence: US)
  Receive Date: 20190412
  Receipt Date: 20190412
  Transmission Date: 20190711
  Serious: Yes (Other)
  Sender: FDA-Public Use
  Company Number: US-SA-2019SA101356

PATIENT
  Sex: Female

DRUGS (1)
  1. DUPIXENT [Suspect]
     Active Substance: DUPILUMAB
     Indication: DERMATITIS ATOPIC
     Dosage: 2 DF, Q4W
     Route: 058
     Dates: start: 201901, end: 201903

REACTIONS (5)
  - Cellulitis [Unknown]
  - Pyrexia [Unknown]
  - Injection site inflammation [Unknown]
  - Injection site warmth [Unknown]
  - Product use issue [Unknown]

NARRATIVE: CASE EVENT DATE: 201903
